FAERS Safety Report 8945929 (Version 1)
Quarter: 2012Q4

REPORT INFORMATION
  Report Type: 
  Country: US (occurrence: US)
  Receive Date: 20121204
  Receipt Date: 20121204
  Transmission Date: 20130627
  Serious: No
  Sender: FDA-Public Use
  Company Number: US-AMGEN-USASP2012073532

PATIENT
  Age: 81 Year
  Sex: Female

DRUGS (6)
  1. ENBREL [Suspect]
     Indication: ARTHRITIS
     Dosage: 50 mg, weekly
     Dates: start: 2010
  2. NUCYNTA [Concomitant]
     Indication: PAIN
     Dosage: 50 mg every four hours
  3. ATORVASTATIN [Concomitant]
     Indication: DYSLIPIDAEMIA
     Dosage: 10 mg, daily
  4. CITALOPRAM [Concomitant]
     Indication: DEPRESSION
     Dosage: 40 mg, daily
  5. ARICEPT [Concomitant]
     Indication: DEMENTIA
     Dosage: 23 mg, daily
  6. LOSARTAN [Concomitant]
     Indication: HYPERTENSION
     Dosage: 50 mg, daily

REACTIONS (1)
  - Drug ineffective [Unknown]
